FAERS Safety Report 9326083 (Version 8)
Quarter: 2014Q2

REPORT INFORMATION
  Report Type: Spontaneous
  Country: DK (occurrence: JP)
  Receive Date: 20130604
  Receipt Date: 20140410
  Transmission Date: 20141212
  Serious: Yes (Other)
  Sender: FDA-Public Use
  Company Number: JP-FRI-1000045596

PATIENT
  Age: 68 Year
  Sex: Female
  Weight: 55 kg

DRUGS (10)
  1. LEXAPRO [Suspect]
     Indication: MAJOR DEPRESSION
     Dosage: 10 MG
     Route: 048
     Dates: start: 20130515, end: 20130522
  2. TAKEPRON [Suspect]
     Dosage: 15 MG
     Route: 048
  3. PAXIL [Suspect]
     Indication: MAJOR DEPRESSION
     Dosage: 40 MG
     Route: 048
     Dates: start: 20130501, end: 20130515
  4. PREDONINE [Suspect]
     Indication: PLEURISY
     Dosage: 20 MG
     Route: 048
     Dates: start: 20130322, end: 20130425
  5. PREDONINE [Suspect]
     Dosage: 15 MG
     Route: 048
     Dates: start: 20130426, end: 20130523
  6. PREDNISOLONE [Suspect]
     Indication: PLEURISY
     Dosage: 3 MG
     Route: 048
     Dates: start: 20130426, end: 20130523
  7. RISPERDAL [Concomitant]
     Indication: DELUSION
     Dosage: 2 MG
     Route: 048
     Dates: start: 20130515, end: 20130528
  8. SINGULAIR [Concomitant]
     Dosage: 10 MG
     Route: 048
  9. MAGLAX [Concomitant]
     Dosage: 990 MG
     Route: 048
  10. APIDRA [Concomitant]
     Dosage: 24 UT
     Route: 058

REACTIONS (3)
  - Ventricular extrasystoles [Recovering/Resolving]
  - Supraventricular extrasystoles [Recovering/Resolving]
  - Drug interaction [Recovering/Resolving]
